FAERS Safety Report 9303697 (Version 2)
Quarter: 2014Q3

REPORT INFORMATION
  Report Type: Spontaneous
  Country: US (occurrence: US)
  Receive Date: 20130522
  Receipt Date: 20140827
  Transmission Date: 20150326
  Serious: Yes (Hospitalization)
  Sender: FDA-Public Use
  Company Number: US-GLAXOSMITHKLINE-A0690189A

PATIENT
  Sex: Female
  Weight: 186.4 kg

DRUGS (2)
  1. AVANDIA [Suspect]
     Active Substance: ROSIGLITAZONE MALEATE
     Indication: TYPE 2 DIABETES MELLITUS
     Dosage: 4MG PER DAY
     Route: 048
     Dates: start: 19990701, end: 20060425
  2. GLUCOPHAGE [Concomitant]
     Active Substance: METFORMIN HYDROCHLORIDE
     Indication: TYPE 2 DIABETES MELLITUS
     Dosage: 500MG PER DAY
     Dates: start: 1995, end: 20060403

REACTIONS (11)
  - Arteriosclerosis [Unknown]
  - Cardiac failure congestive [Unknown]
  - Cerebral ischaemia [Unknown]
  - Nervous system disorder [Unknown]
  - Cardiogenic shock [Unknown]
  - Coronary artery disease [Unknown]
  - Cardiac arrest [Unknown]
  - Pericardial effusion [Unknown]
  - Weight increased [Unknown]
  - Myocardial infarction [Unknown]
  - Pulmonary oedema [Unknown]
